FAERS Safety Report 9291539 (Version 1)
Quarter: 2013Q2

REPORT INFORMATION
  Report Type: Report from Study
  Country: BR (occurrence: BR)
  Receive Date: 20130515
  Receipt Date: 20130515
  Transmission Date: 20140414
  Serious: Yes (Hospitalization, Other)
  Sender: FDA-Public Use
  Company Number: BR-ABBOTT-13P-020-1047726-00

PATIENT
  Age: 85 Year
  Sex: Female
  Weight: 44 kg

DRUGS (11)
  1. HUMIRA [Suspect]
     Indication: RHEUMATOID ARTHRITIS
     Route: 058
     Dates: start: 20120309, end: 20121214
  2. HUMIRA [Suspect]
     Route: 058
     Dates: start: 20130119
  3. MOMETASONE FUROATE MONOHYDRATE [Concomitant]
     Indication: RHINITIS ALLERGIC
     Dosage: 1 APPLICATION A DAY
     Dates: start: 201210
  4. TORLOS [Concomitant]
     Indication: HYPERTENSION
     Route: 048
     Dates: start: 201211
  5. PARIET [Concomitant]
     Indication: GASTRIC DISORDER
     Route: 048
     Dates: start: 20121214
  6. ALENIA [Concomitant]
     Indication: LUNG DISORDER
     Route: 048
     Dates: start: 2011
  7. CHOLECALCIFEROL (ADERA D) [Concomitant]
     Indication: OSTEOPOROSIS
     Route: 048
     Dates: start: 201201
  8. PROTOS [Concomitant]
     Indication: OSTEOPOROSIS
     Route: 048
     Dates: start: 201201
  9. CALCIUM/VITAMIN D (INELLARE) [Concomitant]
     Indication: BLOOD CALCIUM
     Route: 048
     Dates: start: 20121215
  10. CALCIUM/VITAMIN D (INELLARE) [Concomitant]
     Indication: VITAMIN D
  11. STRONTIUM RANELATE [Concomitant]

REACTIONS (5)
  - Femur fracture [Recovering/Resolving]
  - Osteoporosis [Recovered/Resolved]
  - Anaemia [Recovering/Resolving]
  - Pyrexia [Recovered/Resolved]
  - Joint swelling [Recovering/Resolving]
